FAERS Safety Report 8464757-5 (Version None)
Quarter: 2012Q2

REPORT INFORMATION
  Report Type: 
  Country: None (occurrence: None)
  Receive Date: 20120626
  Receipt Date: 20120621
  Transmission Date: 20120825
  Serious: No
  Sender: FDA-Public Use
  Company Number: US-PFIZER INC-2012150533

PATIENT
  Sex: Male

DRUGS (5)
  1. INLYTA [Suspect]
     Indication: RENAL CANCER
     Dosage: 5 MG, 2X/DAY
     Dates: start: 20120101
  2. DIOVAN HCT [Concomitant]
     Indication: BLOOD PRESSURE ABNORMAL
     Dosage: 160/12.5 MG, DAILY
  3. PANTOPRAZOLE [Concomitant]
     Indication: CARDIAC DISORDER
  4. PANTOPRAZOLE [Concomitant]
     Indication: BLOOD PRESSURE ABNORMAL
     Dosage: 40 MG, DAILY
  5. METOPROLOL TARTRATE [Concomitant]
     Indication: CARDIAC DISORDER
     Dosage: 12.5 MG, 2X/DAY

REACTIONS (1)
  - DYSPHONIA [None]
